FAERS Safety Report 7808925-1 (Version None)
Quarter: 2011Q4

REPORT INFORMATION
  Report Type: 
  Country: None (occurrence: None)
  Receive Date: 20111012
  Receipt Date: 20110930
  Transmission Date: 20120403
  Serious: Yes (Other)
  Sender: FDA-Public Use
  Company Number: JP-SANOFI-AVENTIS-2011SA060889

PATIENT
  Age: 85 Year
  Sex: Male

DRUGS (11)
  1. CARVEDILOL [Concomitant]
     Dates: start: 20110615
  2. KALIMATE [Concomitant]
  3. LASIX [Concomitant]
  4. CARVEDILOL [Concomitant]
     Dates: end: 20110602
  5. SERMION [Concomitant]
  6. AMARYL [Suspect]
     Route: 065
     Dates: start: 20080101, end: 20110602
  7. WARFARIN SODIUM [Concomitant]
  8. ALLOPURINOL [Concomitant]
     Dates: end: 20110602
  9. AMARYL [Suspect]
     Route: 065
     Dates: start: 20110623, end: 20110711
  10. ALL OTHER THERAPEUTIC PRODUCTS [Concomitant]
  11. VOGLIBOSE [Concomitant]

REACTIONS (1)
  - BLOOD CREATINE PHOSPHOKINASE INCREASED [None]
